FAERS Safety Report 24880666 (Version 1)
Quarter: 2025Q1

REPORT INFORMATION
  Report Type: Spontaneous
  Country: AE (occurrence: AE)
  Receive Date: 20250123
  Receipt Date: 20250123
  Transmission Date: 20250409
  Serious: Yes (Other)
  Sender: JOHNSON AND JOHNSON
  Company Number: AE-JNJFOC-20250151988

PATIENT
  Age: 18 Year
  Sex: Male

DRUGS (2)
  1. SIMPONI [Suspect]
     Active Substance: GOLIMUMAB
     Indication: Ankylosing spondylitis
     Route: 058
     Dates: start: 2011
  2. CELECOXIB [Concomitant]
     Active Substance: CELECOXIB

REACTIONS (1)
  - Inflammatory bowel disease [Recovering/Resolving]
